FAERS Safety Report 23966926 (Version 1)
Quarter: 2024Q2

REPORT INFORMATION
  Report Type: Report from Study
  Country: CA (occurrence: CA)
  Receive Date: 20240612
  Receipt Date: 20240612
  Transmission Date: 20240716
  Serious: Yes (Other)
  Sender: FDA-Public Use
  Company Number: CA-JNJFOC-20230803800

PATIENT
  Age: 31 Year
  Sex: Female

DRUGS (5)
  1. REMICADE [Suspect]
     Active Substance: INFLIXIMAB
     Indication: Crohn^s disease
     Route: 041
     Dates: start: 20160922
  2. REMICADE [Suspect]
     Active Substance: INFLIXIMAB
     Dosage: EXP-  AU 2026
     Route: 041
  3. REMICADE [Suspect]
     Active Substance: INFLIXIMAB
     Route: 041
     Dates: start: 20160922
  4. NUCALA [Concomitant]
     Active Substance: MEPOLIZUMAB
  5. DOSTINEX [Concomitant]
     Active Substance: CABERGOLINE

REACTIONS (5)
  - Cholelithiasis [Recovering/Resolving]
  - Renal disorder [Not Recovered/Not Resolved]
  - Renal pain [Not Recovered/Not Resolved]
  - Rash [Not Recovered/Not Resolved]
  - Off label use [Unknown]

NARRATIVE: CASE EVENT DATE: 20231218
